FAERS Safety Report 16013854 (Version 1)
Quarter: 2019Q1

REPORT INFORMATION
  Report Type: Spontaneous
  Country: SI (occurrence: SI)
  Receive Date: 20190227
  Receipt Date: 20190227
  Transmission Date: 20190418
  Serious: Yes (Other)
  Sender: FDA-Public Use
  Company Number: SI-JNJFOC-20190236278

PATIENT
  Sex: Female
  Weight: 96 kg

DRUGS (8)
  1. SIMVASTATIN. [Concomitant]
     Active Substance: SIMVASTATIN
     Route: 065
  2. FUROSEMIDE. [Concomitant]
     Active Substance: FUROSEMIDE
     Route: 065
  3. PARACETAMOL [Concomitant]
     Active Substance: ACETAMINOPHEN
     Route: 065
  4. XARELTO [Suspect]
     Active Substance: RIVAROXABAN
     Indication: ATRIAL FIBRILLATION
     Route: 048
     Dates: start: 201902
  5. ALDOSTERONE [Concomitant]
     Active Substance: ALDOSTERONE
     Route: 065
  6. XARELTO [Suspect]
     Active Substance: RIVAROXABAN
     Indication: ATRIAL FIBRILLATION
     Route: 048
     Dates: start: 20180209, end: 20190214
  7. BISOPROLOL [Concomitant]
     Active Substance: BISOPROLOL
     Route: 065
  8. XULTOPHY 100/3.6 [Concomitant]
     Active Substance: INSULIN DEGLUDEC\LIRAGLUTIDE
     Route: 065

REACTIONS (2)
  - Gingival bleeding [Unknown]
  - Renal impairment [Unknown]

NARRATIVE: CASE EVENT DATE: 2018
